FAERS Safety Report 6444248-3 (Version None)
Quarter: 2009Q4

REPORT INFORMATION
  Report Type: 
  Country: None (occurrence: None)
  Receive Date: 20091118
  Receipt Date: 20091109
  Transmission Date: 20100525
  Serious: Yes (Hospitalization)
  Sender: FDA-Public Use
  Company Number: NL-ROCHE-667591

PATIENT
  Sex: Female
  Weight: 67 kg

DRUGS (2)
  1. CAPECITABINE [Suspect]
     Indication: BREAST CANCER
     Dosage: GIVEN FROM DAY 1 TO DAY 14.
     Route: 048
     Dates: start: 20091007
  2. DOCETAXEL [Suspect]
     Indication: BREAST CANCER
     Dosage: GIVEN ON DAY 1.
     Route: 042
     Dates: start: 20091007

REACTIONS (1)
  - FEBRILE NEUTROPENIA [None]
